FAERS Safety Report 6702648-8 (Version None)
Quarter: 2010Q2

REPORT INFORMATION
  Report Type: 
  Country: None (occurrence: None)
  Receive Date: 20100429
  Receipt Date: 20100419
  Transmission Date: 20101027
  Serious: Yes (Other)
  Sender: FDA-Public Use
  Company Number: US-PFIZER INC-2010041376

PATIENT
  Sex: Male
  Weight: 111.11 kg

DRUGS (4)
  1. VIAGRA [Suspect]
     Indication: ERECTILE DYSFUNCTION
     Dosage: 25 MG, UNK
     Dates: start: 19970101
  2. VIAGRA [Suspect]
     Dosage: 50 MG, UNK
  3. VIAGRA [Suspect]
     Dosage: 100 MG, UNK
  4. REQUIP [Suspect]
     Indication: PARKINSON'S DISEASE
     Dosage: UNK

REACTIONS (3)
  - DRUG INEFFECTIVE [None]
  - LIBIDO INCREASED [None]
  - PARKINSON'S DISEASE [None]
